FAERS Safety Report 7458521-3 (Version None)
Quarter: 2011Q2

REPORT INFORMATION
  Report Type: 
  Country: None (occurrence: None)
  Receive Date: 20110504
  Receipt Date: 20110310
  Transmission Date: 20111010
  Serious: Yes (Life-Threatening, Hospitalization)
  Sender: FDA-Public Use
  Company Number: PHHY2011DE20519

PATIENT
  Age: 67 Year
  Sex: Female
  Weight: 93 kg

DRUGS (7)
  1. IBUHEXAL [Suspect]
     Indication: SPINAL OSTEOARTHRITIS
     Dosage: 400 MG, QD
     Route: 048
     Dates: start: 20101103, end: 20101103
  2. DELIX [Suspect]
     Dosage: 2.5 MG, UNK
     Route: 048
     Dates: start: 20101105, end: 20101129
  3. DICLOFENAC [Suspect]
     Indication: SPINAL OSTEOARTHRITIS
     Dosage: UNK
     Route: 048
     Dates: end: 20101102
  4. RAMIPRIL [Suspect]
     Dosage: 2.5 MG, BID
     Route: 048
     Dates: start: 20100923, end: 20101102
  5. IBUPROFEN [Suspect]
     Indication: SPINAL OSTEOARTHRITIS
     Dosage: UNK
     Route: 048
     Dates: end: 20101102
  6. CORDAREX [Suspect]
     Indication: ATRIAL FIBRILLATION
     Dosage: 600 MG, UNK
     Route: 048
     Dates: start: 20101103, end: 20101109
  7. AMLODIPINE BESYLATE [Suspect]
     Indication: HYPERTENSION
     Dosage: 10 MG, UNK
     Route: 048
     Dates: start: 20101103, end: 20101109

REACTIONS (2)
  - TUBULOINTERSTITIAL NEPHRITIS [None]
  - RENAL FAILURE ACUTE [None]
